FAERS Safety Report 24658452 (Version 1)
Quarter: 2024Q4

REPORT INFORMATION
  Report Type: Spontaneous
  Country: MX (occurrence: MX)
  Receive Date: 20241125
  Receipt Date: 20241125
  Transmission Date: 20250115
  Serious: Yes (Other)
  Sender: SCIEGEN PHARMACEUTICALS INC
  Company Number: MX-SCIEGENP-2024SCLIT00415

PATIENT
  Age: 39 Year
  Sex: Female

DRUGS (1)
  1. NAPROXEN [Suspect]
     Active Substance: NAPROXEN
     Indication: Allergy test
     Route: 048

REACTIONS (1)
  - Acute generalised exanthematous pustulosis [Unknown]
